FAERS Safety Report 4653579-9 (Version None)
Quarter: 2005Q2

REPORT INFORMATION
  Report Type: 
  Country: None (occurrence: None)
  Receive Date: 20050404
  Receipt Date: 20041116
  Transmission Date: 20051028
  Serious: No
  Sender: FDA-Public Use
  Company Number: US_0411108558

PATIENT
  Age: 28 Year
  Sex: Male

DRUGS (1)
  1. CYMBALTA [Suspect]
     Dosage: 60 MG
     Dates: start: 20041001

REACTIONS (2)
  - FEELING OF RELAXATION [None]
  - NAUSEA [None]
